FAERS Safety Report 9270397 (Version 2)
Quarter: 2013Q3

REPORT INFORMATION
  Report Type: Report from Study
  Country: US (occurrence: US)
  Receive Date: 20130503
  Receipt Date: 20130814
  Transmission Date: 20140515
  Serious: Yes (Hospitalization, Other)
  Sender: FDA-Public Use
  Company Number: US-ELI_LILLY_AND_COMPANY-US201304008497

PATIENT
  Age: 73 Year
  Sex: Female

DRUGS (3)
  1. TERIPARATIDE [Suspect]
     Dosage: UNK
     Dates: start: 201208, end: 20121020
  2. TERIPARATIDE [Suspect]
     Dosage: UNK
     Dates: end: 20121220
  3. TERIPARATIDE [Suspect]
     Dosage: UNK
     Dates: start: 20130101

REACTIONS (3)
  - Cardiac failure congestive [Unknown]
  - Coronary artery disease [Recovered/Resolved]
  - Pneumonia [Unknown]
